FAERS Safety Report 16894378 (Version 3)
Quarter: 2019Q4

REPORT INFORMATION
  Report Type: Spontaneous
  Country: SE (occurrence: SE)
  Receive Date: 20191008
  Receipt Date: 20191030
  Transmission Date: 20200122
  Serious: Yes (Death, Other)
  Sender: FDA-Public Use
  Company Number: SE-JNJFOC-20191002422

PATIENT
  Age: 19 Year
  Sex: Female

DRUGS (14)
  1. AZATHIOPRINE. [Concomitant]
     Active Substance: AZATHIOPRINE
  2. SALOFALK                           /00747601/ [Concomitant]
     Active Substance: MESALAMINE
  3. ETALPHA [Concomitant]
     Active Substance: ALFACALCIDOL
  4. MAGNESIUM                          /00123201/ [Concomitant]
     Active Substance: MAGNESIUM HYDROXIDE
  5. AIROMIR                            /00139501/ [Concomitant]
     Active Substance: ALBUTEROL
  6. CALCITUGG [Concomitant]
  7. HYDROCORTISONE. [Concomitant]
     Active Substance: HYDROCORTISONE
  8. OMEPRAZOLE. [Concomitant]
     Active Substance: OMEPRAZOLE
  9. BETOLVEX                           /00056201/ [Concomitant]
     Active Substance: CYANOCOBALAMIN
  10. STELARA [Suspect]
     Active Substance: USTEKINUMAB
     Indication: CROHN^S DISEASE
     Route: 058
     Dates: start: 20180125, end: 20190502
  11. DIVISUN [Concomitant]
     Active Substance: CHOLECALCIFEROL
  12. FOLACIN                            /00024201/ [Concomitant]
     Active Substance: FOLIC ACID
  13. ENTOCORT [Concomitant]
     Active Substance: BUDESONIDE
  14. LEVAXIN [Concomitant]
     Active Substance: LEVOTHYROXINE SODIUM

REACTIONS (6)
  - Intestinal stenosis [Fatal]
  - Postoperative wound complication [Fatal]
  - Anastomotic leak [Fatal]
  - Sepsis [Fatal]
  - Thrombosis [Fatal]
  - Disseminated intravascular coagulation [Fatal]

NARRATIVE: CASE EVENT DATE: 20190614
